FAERS Safety Report 4354794-4 (Version None)
Quarter: 2004Q2

REPORT INFORMATION
  Report Type: 
  Country: None (occurrence: None)
  Receive Date: 20040507
  Receipt Date: 20040311
  Transmission Date: 20050107
  Serious: Yes (Hospitalization, Disabling)
  Sender: FDA-Public Use
  Company Number: US-MERCK-0403USA01210

PATIENT
  Age: 61 Year
  Sex: Female

DRUGS (10)
  1. [THERAPY UNSPECIFIED] [Concomitant]
     Route: 065
  2. NORVASC [Concomitant]
     Route: 065
  3. ASPIRIN [Concomitant]
     Route: 065
  4. COSOPT [Suspect]
     Indication: ANGLE CLOSURE GLAUCOMA
     Route: 047
     Dates: start: 20020801, end: 20040301
  5. PROZAC [Concomitant]
     Route: 065
  6. XALATAN [Concomitant]
     Route: 065
  7. ATIVAN [Concomitant]
     Route: 065
  8. PRAVACHOL [Concomitant]
     Route: 065
  9. RESCULA [Concomitant]
     Route: 065
  10. AMBIEN [Concomitant]
     Route: 065

REACTIONS (16)
  - BALANCE DISORDER [None]
  - CARDIAC DISORDER [None]
  - CONJUNCTIVITIS [None]
  - DISTURBANCE IN ATTENTION [None]
  - EYE DISCHARGE [None]
  - EYE IRRITATION [None]
  - FOOT FRACTURE [None]
  - HEADACHE [None]
  - HYPERSENSITIVITY [None]
  - MENTAL DISORDER [None]
  - MOOD SWINGS [None]
  - OEDEMA PERIPHERAL [None]
  - PHOTOSENSITIVITY REACTION [None]
  - STOMACH DISCOMFORT [None]
  - SUICIDAL IDEATION [None]
  - VISUAL FIELD DEFECT [None]
